FAERS Safety Report 24031168 (Version 1)
Quarter: 2024Q2

REPORT INFORMATION
  Report Type: Spontaneous
  Country: US (occurrence: US)
  Receive Date: 20240628
  Receipt Date: 20240628
  Transmission Date: 20240716
  Serious: Yes (Death, Hospitalization, Other)
  Sender: FDA-Public Use
  Company Number: US-APOTEX-2024AP007618

PATIENT
  Age: 49 Year
  Sex: Male

DRUGS (1)
  1. FENOFIBRATE [Interacting]
     Active Substance: FENOFIBRATE
     Indication: Product used for unknown indication
     Dosage: UNK
     Route: 065

REACTIONS (12)
  - Rhabdomyolysis [Fatal]
  - Gastrointestinal haemorrhage [Fatal]
  - Hepatic failure [Fatal]
  - Acute kidney injury [Fatal]
  - Multiple organ dysfunction syndrome [Fatal]
  - Drug interaction [Fatal]
  - Liver disorder [Fatal]
  - Anaemia [Fatal]
  - Haemodynamic instability [Fatal]
  - Condition aggravated [Fatal]
  - Acidosis [Fatal]
  - Intestinal ischaemia [Fatal]
